FAERS Safety Report 14156417 (Version 4)
Quarter: 2017Q4

REPORT INFORMATION
  Report Type: Spontaneous
  Country: CA (occurrence: CA)
  Receive Date: 20171103
  Receipt Date: 20171214
  Transmission Date: 20180321
  Serious: Yes (Other)
  Sender: FDA-Public Use
  Company Number: CA-AMGEN-CANSP2017162839

PATIENT
  Sex: Female

DRUGS (2)
  1. ENBREL [Suspect]
     Active Substance: ETANERCEPT
     Indication: RHEUMATOID ARTHRITIS
     Dosage: 50 MG, UNK
     Route: 065
     Dates: start: 2015
  2. METHOTREXATE. [Concomitant]
     Active Substance: METHOTREXATE
     Indication: RHEUMATOID ARTHRITIS
     Dosage: 20 MG, UNK
     Dates: start: 2010

REACTIONS (8)
  - Rheumatoid arthritis [Unknown]
  - Seizure [Unknown]
  - Fatigue [Unknown]
  - Respiratory tract congestion [Unknown]
  - Sinusitis [Unknown]
  - Stress [Unknown]
  - Nasopharyngitis [Unknown]
  - Depression [Unknown]

NARRATIVE: CASE EVENT DATE: 2005
